FAERS Safety Report 8803791 (Version 1)
Quarter: 2012Q4

REPORT INFORMATION
  Report Type: 
  Country: US (occurrence: US)
  Receive Date: 20120924
  Receipt Date: 20120924
  Transmission Date: 20130627
  Serious: No
  Sender: FDA-Public Use
  Company Number: US-PFIZER INC-2012232112

PATIENT
  Age: 53 Year
  Sex: Male
  Weight: 74.38 kg

DRUGS (3)
  1. VIAGRA [Suspect]
     Indication: ERECTILE DYSFUNCTION
     Dosage: 100 mg, as needed
     Route: 048
     Dates: start: 2011
  2. TYLENOL [Concomitant]
     Indication: SCIATICA
     Dosage: UNK, as needed
  3. TRAMADOL [Concomitant]
     Indication: SCIATICA
     Dosage: 20 mg, as needed

REACTIONS (1)
  - Drug ineffective [Unknown]
